FAERS Safety Report 6885009-0 (Version None)
Quarter: 2010Q3

REPORT INFORMATION
  Report Type: 
  Country: None (occurrence: None)
  Receive Date: 20100729
  Receipt Date: 20071009
  Transmission Date: 20110219
  Serious: Yes (Other)
  Sender: FDA-Public Use
  Company Number: US-PFIZER INC-2007085128

PATIENT
  Sex: Female
  Weight: 59.09 kg

DRUGS (1)
  1. CELEBREX [Suspect]
     Indication: FRACTURED COCCYX

REACTIONS (2)
  - ERYTHEMA [None]
  - HYPERSENSITIVITY [None]
